FAERS Safety Report 5803591-9 (Version None)
Quarter: 2008Q3

REPORT INFORMATION
  Report Type: 
  Country: None (occurrence: None)
  Receive Date: 20080703
  Receipt Date: 20080415
  Transmission Date: 20090109
  Serious: Yes (Life-Threatening, Hospitalization)
  Sender: FDA-Public Use
  Company Number: 2008-01324

PATIENT
  Age: 73 Year
  Sex: Male
  Weight: 83 kg

DRUGS (2)
  1. VELCADE [Suspect]
     Indication: LEUKAEMIA PLASMACYTIC
     Dosage: 2.6 MG, INTRAVENOUS
     Route: 042
     Dates: start: 20080411, end: 20080411
  2. SOLU MODERIN (METHYLPREDNISOLONE SODIUM SUCCINATE) [Concomitant]

REACTIONS (3)
  - DIALYSIS [None]
  - PULMONARY ALVEOLAR HAEMORRHAGE [None]
  - RESPIRATORY DISTRESS [None]
